FAERS Safety Report 9732892 (Version 2)
Quarter: 2013Q4

REPORT INFORMATION
  Report Type: Spontaneous
  Country: US (occurrence: US)
  Receive Date: 20131204
  Receipt Date: 20131204
  Transmission Date: 20140711
  Serious: Yes (Hospitalization)
  Sender: FDA-Public Use
  Company Number: US-GILEAD-2009-0021611

PATIENT
  Age: 59 Year
  Sex: Female

DRUGS (4)
  1. LETAIRIS [Suspect]
     Indication: PULMONARY ARTERIAL HYPERTENSION
     Route: 048
     Dates: start: 20090328, end: 20090421
  2. NORVASC [Concomitant]
     Indication: HYPERTENSION
  3. HYDRALAZINE [Concomitant]
     Indication: HYPERTENSION
  4. BYSTOLIC [Concomitant]
     Indication: HYPERTENSION

REACTIONS (4)
  - Oedema peripheral [Recovered/Resolved]
  - Abnormal weight gain [Recovered/Resolved]
  - Generalised oedema [Recovered/Resolved]
  - Fluid overload [Recovered/Resolved]
